FAERS Safety Report 8204301-0 (Version None)
Quarter: 2012Q1

REPORT INFORMATION
  Report Type: 
  Country: None (occurrence: None)
  Receive Date: 20120313
  Receipt Date: 20120306
  Transmission Date: 20120608
  Serious: Yes (Hospitalization)
  Sender: FDA-Public Use
  Company Number: NL-AMGEN-NLDSP2011055027

PATIENT
  Age: 64 Year
  Sex: Male
  Weight: 111 kg

DRUGS (7)
  1. NEUPOGEN [Suspect]
     Indication: DIFFUSE LARGE B-CELL LYMPHOMA
     Dosage: 6 ABSENT, UNK
     Route: 058
     Dates: start: 20110824
  2. SULFAMETHOXAZOLE AND TRIMETHOPRIM [Concomitant]
     Dosage: 480 MG, UNK
     Dates: start: 20110824, end: 20110902
  3. RITUXIMAB [Suspect]
     Indication: DIFFUSE LARGE B-CELL LYMPHOMA
     Dosage: 750 ABSENT, UNK
     Route: 042
     Dates: start: 20110824
  4. CYCLOPHOSPHAMIDE [Suspect]
     Indication: DIFFUSE LARGE B-CELL LYMPHOMA
     Dosage: 1800 ABSENT, UNK
     Route: 042
     Dates: start: 20110824
  5. VINCRISTINE [Suspect]
     Indication: DIFFUSE LARGE B-CELL LYMPHOMA
     Dosage: 1 ABSENT, UNK
     Route: 042
     Dates: start: 20110824
  6. PREDNISONE [Suspect]
     Indication: DIFFUSE LARGE B-CELL LYMPHOMA
     Dosage: 100 ABSENT, UNK
     Route: 048
     Dates: start: 20110824
  7. DOXORUBICIN HCL [Suspect]
     Indication: DIFFUSE LARGE B-CELL LYMPHOMA
     Dosage: 120 ABSENT, UNK
     Route: 042
     Dates: start: 20110824

REACTIONS (1)
  - FEBRILE NEUTROPENIA [None]
